FAERS Safety Report 25161822 (Version 2)
Quarter: 2025Q2

REPORT INFORMATION
  Report Type: Report from Study
  Country: GB (occurrence: GB)
  Receive Date: 20250404
  Receipt Date: 20250502
  Transmission Date: 20250716
  Serious: Yes (Other)
  Sender: SAMSUNG BIOEPIS
  Company Number: GB-SAMSUNG BIOEPIS-SB-2025-11649

PATIENT
  Age: 54 Year
  Sex: Female

DRUGS (1)
  1. ETANERCEPT [Suspect]
     Active Substance: ETANERCEPT
     Indication: Rheumatoid arthritis
     Route: 058
     Dates: start: 20240508

REACTIONS (5)
  - Coma [Unknown]
  - Influenza [Unknown]
  - Gait disturbance [Unknown]
  - Decreased appetite [Unknown]
  - Illness [Unknown]
